FAERS Safety Report 14253479 (Version 1)
Quarter: 2017Q4

REPORT INFORMATION
  Report Type: Spontaneous
  Country: GB (occurrence: GB)
  Receive Date: 20171206
  Receipt Date: 20171206
  Transmission Date: 20180321
  Serious: Yes (Other)
  Sender: FDA-Public Use
  Company Number: GB-ACCORD-061618

PATIENT
  Age: 73 Year
  Sex: Male
  Weight: 76.2 kg

DRUGS (5)
  1. COCODAMOL [Concomitant]
     Active Substance: ACETAMINOPHEN\CODEINE PHOSPHATE
     Dosage: 500/30MG
  2. ALLOPURINOL. [Suspect]
     Active Substance: ALLOPURINOL
     Indication: GOUT
     Route: 048
     Dates: start: 2014, end: 20171014
  3. SANDOZ LTD CO-AMOXICLAV [Interacting]
     Active Substance: AMOXICILLIN\CLAVULANATE POTASSIUM
     Indication: WOUND INFECTION
     Dosage: 500/125MG
     Route: 048
     Dates: start: 20170924, end: 20171001
  4. ASPIRIN. [Concomitant]
     Active Substance: ASPIRIN
  5. LISINOPRIL. [Concomitant]
     Active Substance: LISINOPRIL

REACTIONS (5)
  - Abdominal pain upper [Not Recovered/Not Resolved]
  - Drug interaction [Unknown]
  - Labelled drug-drug interaction medication error [Unknown]
  - Balanoposthitis [Not Recovered/Not Resolved]
  - Malaise [Not Recovered/Not Resolved]

NARRATIVE: CASE EVENT DATE: 20171001
